FAERS Safety Report 7425628-6 (Version None)
Quarter: 2011Q2

REPORT INFORMATION
  Report Type: 
  Country: None (occurrence: None)
  Receive Date: 20110418
  Receipt Date: 20110418
  Transmission Date: 20111010
  Serious: Yes (Other)
  Sender: FDA-Public Use
  Company Number: None

PATIENT
  Age: 49 Year
  Sex: Male
  Weight: 154.6766 kg

DRUGS (1)
  1. GLIPIZIDE [Suspect]
     Indication: DIABETES MELLITUS
     Dosage: GLIPIZIDE ER 5MG TWO BID PO 047
     Route: 048
     Dates: start: 20101130, end: 20110401

REACTIONS (2)
  - PRODUCT SUBSTITUTION ISSUE [None]
  - BLOOD GLUCOSE FLUCTUATION [None]
